FAERS Safety Report 12244683 (Version 1)
Quarter: 2016Q2

REPORT INFORMATION
  Report Type: Report from Study
  Country: US (occurrence: US)
  Receive Date: 20160407
  Receipt Date: 20160407
  Transmission Date: 20160815
  Serious: No
  Sender: FDA-Public Use
  Company Number: US-CELGENEUS-USA-2016040351

PATIENT
  Age: 66 Year
  Sex: Male
  Weight: 33.77 kg

DRUGS (3)
  1. DEXAMETHASONE. [Concomitant]
     Active Substance: DEXAMETHASONE
     Indication: PLASMA CELL MYELOMA
     Route: 065
     Dates: start: 20130328, end: 20130711
  2. REVLIMID [Suspect]
     Active Substance: LENALIDOMIDE
     Indication: PLASMA CELL MYELOMA
     Dosage: 25 MILLIGRAM
     Route: 048
     Dates: start: 20130328, end: 20130711
  3. BORT [Concomitant]
     Indication: PLASMA CELL MYELOMA
     Route: 058
     Dates: start: 20130328, end: 20130711

REACTIONS (3)
  - Pain [Unknown]
  - Pain in extremity [Unknown]
  - Toxicity to various agents [Unknown]
